FAERS Safety Report 5220634-4 (Version None)
Quarter: 2007Q1

REPORT INFORMATION
  Report Type: 
  Country: None (occurrence: None)
  Receive Date: 20070126
  Receipt Date: 20070116
  Transmission Date: 20070707
  Serious: Yes (Hospitalization)
  Sender: FDA-Public Use
  Company Number: PHBS2006JP19641

PATIENT
  Age: 51 Year
  Sex: Male
  Weight: 50 kg

DRUGS (15)
  1. PARLODEL [Suspect]
     Indication: PARKINSON'S DISEASE
     Dosage: 2.5 MG/DAY
     Route: 048
     Dates: start: 20061114, end: 20061118
  2. PARLODEL [Suspect]
     Dosage: 5 MG
     Route: 048
     Dates: start: 20061119, end: 20061120
  3. PARLODEL [Suspect]
     Dosage: 7.5 MG/DAY
     Route: 048
     Dates: start: 20061121, end: 20061123
  4. PARLODEL [Suspect]
     Dosage: 10 MG/DAY
     Route: 048
     Dates: start: 20061124, end: 20061127
  5. PARLODEL [Suspect]
     Dosage: 12.5 MG/DAY
     Route: 048
     Dates: start: 20061128, end: 20061211
  6. PARLODEL [Suspect]
     Dosage: 11.25 MG/DAY
     Route: 048
     Dates: start: 20061212, end: 20061218
  7. PARLODEL [Suspect]
     Dosage: 10 MG/DAY
     Route: 048
     Dates: start: 20061219
  8. FERROMIA [Concomitant]
     Indication: IRON DEFICIENCY ANAEMIA
     Dosage: 100 MG, UNK
     Route: 048
     Dates: start: 20061102
  9. NAUZELIN [Concomitant]
     Dosage: 20 MG, UNK
     Route: 048
     Dates: start: 20061113, end: 20061211
  10. PANVITAN [Concomitant]
     Dosage: 1.5 MG, UNK
     Route: 048
     Dates: start: 20061102
  11. DESYREL [Concomitant]
     Indication: INSOMNIA
     Dosage: 25 MG, UNK
     Route: 048
  12. HALCION [Concomitant]
     Dosage: 0.25 MG/DAY
  13. HALCION [Concomitant]
     Dosage: 0.125 MG/DAY
     Dates: end: 20061125
  14. NITRAZEPAM [Concomitant]
     Dosage: 10 MG/DAY
     Route: 048
  15. NITRAZEPAM [Concomitant]
     Dosage: 5 MG/DAY
     Route: 048
     Dates: end: 20061204

REACTIONS (5)
  - BLOOD CREATINE PHOSPHOKINASE INCREASED [None]
  - DELIRIUM [None]
  - NEUROLEPTIC MALIGNANT SYNDROME [None]
  - PYREXIA [None]
  - TREMOR [None]
